FAERS Safety Report 9998122 (Version 1)
Quarter: 2014Q1

REPORT INFORMATION
  Report Type: Spontaneous
  Country: PL (occurrence: PL)
  Receive Date: 20140311
  Receipt Date: 20140311
  Transmission Date: 20141002
  Serious: Yes (Other)
  Sender: FDA-Public Use
  Company Number: PL-JHP PHARMACEUTICALS, LLC-JHP201400092

PATIENT
  Age: 38 Year
  Sex: Female

DRUGS (2)
  1. PITOCIN [Suspect]
     Indication: LABOUR INDUCTION
  2. ANESTHETICS, GENERAL [Concomitant]

REACTIONS (2)
  - Acute left ventricular failure [Recovered/Resolved]
  - Maternal exposure during delivery [Recovered/Resolved]
